FAERS Safety Report 5315806-4 (Version None)
Quarter: 2007Q2

REPORT INFORMATION
  Report Type: 
  Country: None (occurrence: None)
  Receive Date: 20070503
  Receipt Date: 20070418
  Transmission Date: 20071010
  Serious: Yes (Hospitalization)
  Sender: FDA-Public Use
  Company Number: FR-GLAXOSMITHKLINE-B0457637A

PATIENT
  Age: 79 Year
  Sex: Female
  Weight: 62 kg

DRUGS (1)
  1. ARIXTRA [Suspect]
     Indication: PHLEBITIS
     Dosage: 7.5MG PER DAY
     Route: 058
     Dates: start: 20070101

REACTIONS (2)
  - HAEMATOMA [None]
  - NERVE COMPRESSION [None]
